FAERS Safety Report 24923944 (Version 3)
Quarter: 2025Q1

REPORT INFORMATION
  Report Type: Spontaneous
  Country: US (occurrence: US)
  Receive Date: 20250204
  Receipt Date: 20250214
  Transmission Date: 20250409
  Serious: No
  Sender: BAUSCH AND LOMB
  Company Number: US-BAUSCH-BL-2025-001284

PATIENT
  Age: 54 Year
  Sex: Female
  Weight: 48.578 kg

DRUGS (2)
  1. TRETINOIN [Suspect]
     Active Substance: TRETINOIN
     Indication: Acne
     Dosage: 0.1% 20 GM
     Route: 061
     Dates: start: 20250122
  2. TRETINOIN [Suspect]
     Active Substance: TRETINOIN
     Indication: Skin exfoliation

REACTIONS (1)
  - Drug ineffective [Unknown]

NARRATIVE: CASE EVENT DATE: 20250123
